FAERS Safety Report 8984936 (Version 2)
Quarter: 2013Q2

REPORT INFORMATION
  Report Type: Report from Study
  Country: JP (occurrence: JP)
  Receive Date: 20121226
  Receipt Date: 20130610
  Transmission Date: 20140414
  Serious: Yes (Other)
  Sender: FDA-Public Use
  Company Number: PHHY2012JP118879

PATIENT
  Age: 38 Year
  Sex: Female
  Weight: 41 kg

DRUGS (1)
  1. AFINITOR [Suspect]
     Indication: PANCREATIC NEUROENDOCRINE TUMOUR
     Dosage: 10 MG, DAILY
     Route: 048
     Dates: start: 20120411, end: 20120605

REACTIONS (4)
  - Skin ulcer [Recovering/Resolving]
  - Necrolytic migratory erythema [Unknown]
  - Hepatic function abnormal [Recovering/Resolving]
  - Stomatitis [Recovered/Resolved]
